FAERS Safety Report 7968102-0 (Version None)
Quarter: 2011Q4

REPORT INFORMATION
  Report Type: 
  Country: None (occurrence: None)
  Receive Date: 20111207
  Receipt Date: 20111123
  Transmission Date: 20120403
  Serious: Yes (Death, Other)
  Sender: FDA-Public Use
  Company Number: 2010AP001957

PATIENT
  Age: 48 Year
  Sex: Female

DRUGS (9)
  1. TEMAZEPAM [Concomitant]
  2. RAMIPRIL [Concomitant]
  3. PAROXETINE HCL [Concomitant]
  4. AMISULPRIDE (AMISULPRIDE) [Suspect]
     Indication: SCHIZOPHRENIA
     Dosage: 200MG;PO
     Route: 048
     Dates: end: 20100801
  5. CLOZARIL [Suspect]
     Indication: DISEASE RECURRENCE
     Dosage: 600 MG;PO;QD ; 600 MG;PO;QD
     Route: 048
     Dates: start: 20030101, end: 20041001
  6. CLOZARIL [Suspect]
     Indication: SCHIZOPHRENIA
     Dosage: 600 MG;PO;QD ; 600 MG;PO;QD
     Route: 048
     Dates: start: 20030101, end: 20041001
  7. CLOZARIL [Suspect]
     Indication: DISEASE RECURRENCE
     Dosage: 600 MG;PO;QD ; 600 MG;PO;QD
     Route: 048
     Dates: start: 20050207
  8. CLOZARIL [Suspect]
     Indication: SCHIZOPHRENIA
     Dosage: 600 MG;PO;QD ; 600 MG;PO;QD
     Route: 048
     Dates: start: 20050207
  9. LAMOTRIGINE [Suspect]
     Indication: CONVULSION
     Dosage: 50 MG
     Dates: end: 20100801

REACTIONS (14)
  - ABSCESS [None]
  - INFLUENZA LIKE ILLNESS [None]
  - GENERAL PHYSICAL HEALTH DETERIORATION [None]
  - BREAST CANCER METASTATIC [None]
  - DISSEMINATED INTRAVASCULAR COAGULATION [None]
  - HAEMOGLOBIN DECREASED [None]
  - BREAST ABSCESS [None]
  - MENTAL IMPAIRMENT [None]
  - NEUTROPHIL COUNT INCREASED [None]
  - METASTASES TO SPINE [None]
  - DISEASE RECURRENCE [None]
  - WHITE BLOOD CELL COUNT INCREASED [None]
  - PLATELET COUNT DECREASED [None]
  - SCHIZOPHRENIA [None]
